FAERS Safety Report 19923365 (Version 4)
Quarter: 2021Q4

REPORT INFORMATION
  Report Type: Spontaneous
  Country: GB (occurrence: GB)
  Receive Date: 20211006
  Receipt Date: 20211029
  Transmission Date: 20220303
  Serious: Yes (Hospitalization)
  Sender: FDA-Public Use
  Company Number: None

PATIENT
  Sex: Female
  Weight: 73 kg

DRUGS (20)
  1. MEMANTINE [Suspect]
     Active Substance: MEMANTINE
     Indication: Dementia Alzheimer^s type
     Route: 048
     Dates: start: 202106
  2. MEMANTINE [Suspect]
     Active Substance: MEMANTINE
  3. PREGABALIN [Suspect]
     Active Substance: PREGABALIN
     Indication: Anxiety
     Route: 048
  4. BISOPROLOL [Suspect]
     Active Substance: BISOPROLOL
     Indication: Hypertension
     Route: 048
  5. CHOLECALCIFEROL [Suspect]
     Active Substance: CHOLECALCIFEROL
     Indication: Vitamin D abnormal
     Dosage: 800U
     Route: 048
  6. CLOZARIL [Suspect]
     Active Substance: CLOZAPINE
     Indication: Schizophrenia
     Route: 048
     Dates: start: 20141128
  7. MINERAL OIL\PETROLATUM\WAX, EMULSIFYING [Suspect]
     Active Substance: MINERAL OIL\PETROLATUM\WAX, EMULSIFYING
     Indication: Eczema
     Route: 061
  8. PETROLATUM [Suspect]
     Active Substance: PETROLATUM
     Indication: Eczema
     Route: 061
  9. MINERAL OIL [Suspect]
     Active Substance: MINERAL OIL
     Indication: Eczema
     Route: 061
  10. ISOSORBIDE MONONITRATE [Suspect]
     Active Substance: ISOSORBIDE MONONITRATE
     Indication: Diabetes mellitus
     Route: 048
  11. LANSOPRAZOLE [Suspect]
     Active Substance: LANSOPRAZOLE
     Indication: Prophylaxis
     Route: 048
  12. LEVOTHYROXINE SODIUM [Suspect]
     Active Substance: LEVOTHYROXINE SODIUM
     Indication: Hypothyroidism
     Route: 048
  13. MEBEVERINE [Suspect]
     Active Substance: MEBEVERINE
     Indication: Prophylaxis
     Route: 048
  14. MIRABEGRON [Suspect]
     Active Substance: MIRABEGRON
     Indication: Anxiety
     Route: 048
  15. MIRABEGRON [Suspect]
     Active Substance: MIRABEGRON
     Indication: Hypertonic bladder
  16. SENNA [Suspect]
     Active Substance: SENNA LEAF\SENNOSIDES\SENNOSIDES A AND B
     Indication: Constipation
     Route: 048
  17. HYALURONATE SODIUM [Suspect]
     Active Substance: HYALURONATE SODIUM
     Indication: Dry eye
     Route: 061
  18. TREHALOSE [Suspect]
     Active Substance: TREHALOSE
     Indication: Dry eye
     Route: 061
  19. VENTOLIN [Suspect]
     Active Substance: ALBUTEROL SULFATE
     Indication: Asthma
  20. VENTOLIN [Suspect]
     Active Substance: ALBUTEROL SULFATE
     Dosage: UNK, PRN

REACTIONS (19)
  - Lung neoplasm malignant [Not Recovered/Not Resolved]
  - Chest pain [Unknown]
  - Metastatic neoplasm [Unknown]
  - Dementia Alzheimer^s type [Unknown]
  - Pleural effusion [Not Recovered/Not Resolved]
  - Hypothyroidism [Unknown]
  - Schizophrenia [Unknown]
  - Cellulitis [Unknown]
  - Angina pectoris [Unknown]
  - Delirium [Unknown]
  - Iron deficiency anaemia [Unknown]
  - Vitamin D deficiency [Unknown]
  - Haemorrhoids [Unknown]
  - Dermatitis atopic [Unknown]
  - Anxiety disorder [Unknown]
  - Chronic obstructive pulmonary disease [Unknown]
  - Rash [Unknown]
  - Urinary tract infection [Unknown]
  - Dyspepsia [Unknown]

NARRATIVE: CASE EVENT DATE: 20151125
